FAERS Safety Report 5995554-8 (Version None)
Quarter: 2008Q4

REPORT INFORMATION
  Report Type: 
  Country: None (occurrence: None)
  Receive Date: 20081212
  Receipt Date: 20081016
  Transmission Date: 20090506
  Serious: No
  Sender: FDA-Public Use
  Company Number: US-ABBOTT-08P-163-0479095-00

PATIENT
  Sex: Male
  Weight: 113.05 kg

DRUGS (18)
  1. HUMIRA [Suspect]
     Indication: PSORIASIS
     Route: 058
  2. HUMIRA [Suspect]
     Dosage: 1 IN 1 WEEK, PRE-FILLED SYRINGE
     Route: 058
     Dates: start: 20060101, end: 20080902
  3. HUMIRA [Suspect]
     Dates: start: 20080902
  4. FLUTICASONE PROPIONATE [Concomitant]
     Indication: HYPERSENSITIVITY
     Dosage: 2 SPRAYS 2 TIMES DAILY
     Route: 055
     Dates: start: 20080701
  5. SERETIDE [Concomitant]
     Indication: ASTHMA
     Dosage: 250/50MG DAILY
     Route: 048
     Dates: start: 20030101
  6. ESOMEPRAZOLE SODIUM [Concomitant]
     Indication: GASTRIC DISORDER
     Route: 048
     Dates: start: 20030101
  7. ETODOLAC [Concomitant]
     Indication: ANTIINFLAMMATORY THERAPY
     Route: 048
     Dates: start: 20060101
  8. TOPIRAMATE [Concomitant]
     Indication: CONVULSION
     Route: 048
     Dates: start: 20040101
  9. CADUET [Concomitant]
     Indication: BLOOD PRESSURE
     Route: 048
     Dates: start: 20080701
  10. CADUET [Concomitant]
     Indication: BLOOD CHOLESTEROL
  11. DIOVAN HCT [Concomitant]
     Indication: BLOOD PRESSURE
     Route: 048
     Dates: start: 20000101
  12. ZOLPIDEM [Concomitant]
     Indication: INSOMNIA
     Route: 048
     Dates: start: 20080901
  13. HYDROCODONE BITARTRATE [Concomitant]
     Indication: PAIN
     Route: 048
  14. HYDROXYZINE [Concomitant]
     Indication: PRURITUS
     Route: 048
  15. SERTRALINE [Concomitant]
     Indication: DEPRESSION
     Route: 048
     Dates: start: 20080701
  16. MONTELUKAST SODIUM [Concomitant]
     Indication: ASTHMA
     Route: 048
  17. ALBUTEROL SULFATE [Concomitant]
     Indication: ASTHMA
     Dosage: EVERY 8 HOURS AS REQUIRED
     Route: 055
  18. TRAMINOL CREAM [Concomitant]
     Indication: PSORIASIS
     Route: 061

REACTIONS (4)
  - CELLULITIS [None]
  - INFECTION [None]
  - SKIN EXFOLIATION [None]
  - SUBCUTANEOUS ABSCESS [None]
